FAERS Safety Report 8245225-2 (Version None)
Quarter: 2012Q1

REPORT INFORMATION
  Report Type: 
  Country: None (occurrence: None)
  Receive Date: 20120329
  Receipt Date: 20120323
  Transmission Date: 20120608
  Serious: Yes (Hospitalization, Other)
  Sender: FDA-Public Use
  Company Number: PHHY2012CA024110

PATIENT
  Sex: Male

DRUGS (4)
  1. RITUXAN [Concomitant]
  2. ZOLEDRONOC ACID [Suspect]
     Indication: OSTEOPOROSIS
     Dosage: UNK
     Route: 042
     Dates: start: 20100319
  3. ANTIBIOTICS [Concomitant]
  4. ZOLEDRONOC ACID [Suspect]
     Dosage: UNK
     Route: 042
     Dates: start: 20110505

REACTIONS (6)
  - BONE DENSITY INCREASED [None]
  - NEOPLASM MALIGNANT [None]
  - NECK PAIN [None]
  - PNEUMONIA [None]
  - BONE PAIN [None]
  - PAIN IN EXTREMITY [None]
